FAERS Safety Report 23631641 (Version 1)
Quarter: 2024Q1

REPORT INFORMATION
  Report Type: Spontaneous
  Country: US (occurrence: None)
  Receive Date: 20240313
  Receipt Date: 20240313
  Transmission Date: 20240409
  Serious: Yes (Life-Threatening, Hospitalization, Disabling, Other)
  Sender: FDA-Public Use
  Company Number: None

PATIENT
  Age: 46 Year
  Sex: Female
  Weight: 90 kg

DRUGS (1)
  1. CLONAZEPAM [Suspect]
     Active Substance: CLONAZEPAM
     Indication: Anxiety
     Dosage: OTHER QUANTITY : 45 TABLET(S);?FREQUENCY : AS NEEDED;?
     Route: 048
     Dates: start: 20090901, end: 20220327

REACTIONS (10)
  - Memory impairment [None]
  - Influenza [None]
  - Intentional dose omission [None]
  - Seizure [None]
  - Drug withdrawal syndrome [None]
  - Hallucination [None]
  - Cold sweat [None]
  - Insomnia [None]
  - Insomnia [None]
  - Quality of life decreased [None]

NARRATIVE: CASE EVENT DATE: 20220327
